FAERS Safety Report 9630198 (Version 1)
Quarter: 2013Q4

REPORT INFORMATION
  Report Type: Spontaneous
  Country: US (occurrence: US)
  Receive Date: 20131017
  Receipt Date: 20131017
  Transmission Date: 20140711
  Serious: Yes (Hospitalization, Disabling)
  Sender: FDA-Public Use
  Company Number: US-ACTAVIS-2013-18238

PATIENT
  Age: 74 Year
  Sex: Male
  Weight: 100 kg

DRUGS (4)
  1. CIPROFLOXACIN HYDROCHLORIDE [Suspect]
     Indication: INFECTION
     Dosage: 500 MG, DAILY FOR 14 DAYS
     Route: 048
     Dates: start: 201308, end: 201309
  2. CIPRO /00697201/ [Suspect]
     Indication: INFECTION
     Dosage: 300 MG, BID FOR 5 DAYS
     Route: 048
     Dates: start: 20130910, end: 20130913
  3. ATENOLOL [Concomitant]
     Indication: HEART RATE IRREGULAR
     Dosage: 25 MG, BID
     Route: 048
     Dates: start: 2008
  4. LIPITOR [Concomitant]
     Indication: BLOOD CHOLESTEROL
     Dosage: 20 MG, DAILY
     Route: 048
     Dates: start: 2010

REACTIONS (3)
  - Transurethral bladder resection [Recovered/Resolved]
  - Muscle spasms [Recovering/Resolving]
  - Gait disturbance [Recovering/Resolving]
